FAERS Safety Report 7663728-6 (Version None)
Quarter: 2011Q3

REPORT INFORMATION
  Report Type: 
  Country: None (occurrence: None)
  Receive Date: 20110805
  Receipt Date: 20100831
  Transmission Date: 20111222
  Serious: No
  Sender: FDA-Public Use
  Company Number: US-ABBOTT-10P-163-0668839-00

PATIENT
  Sex: Female
  Weight: 65.83 kg

DRUGS (1)
  1. NIASPAN [Suspect]
     Indication: BLOOD CHOLESTEROL ABNORMAL
     Route: 048
     Dates: start: 20100613

REACTIONS (7)
  - ABDOMINAL DISTENSION [None]
  - HEADACHE [None]
  - SINUS CONGESTION [None]
  - RASH MACULAR [None]
  - SINUS HEADACHE [None]
  - PRURITUS [None]
  - COUGH [None]
